FAERS Safety Report 22151125 (Version 1)
Quarter: 2023Q1

REPORT INFORMATION
  Report Type: Spontaneous
  Country: US (occurrence: US)
  Receive Date: 20230329
  Receipt Date: 20230329
  Transmission Date: 20230417
  Serious: No
  Sender: FDA-Public Use
  Company Number: US-009507513-2303USA001628

PATIENT
  Age: 57 Year
  Sex: Female

DRUGS (14)
  1. TRUSOPT [Suspect]
     Active Substance: DORZOLAMIDE HYDROCHLORIDE
     Indication: Angle closure glaucoma
     Dosage: UNK
     Route: 061
  2. TRUSOPT [Suspect]
     Active Substance: DORZOLAMIDE HYDROCHLORIDE
     Indication: Glaucoma
  3. TIMOLOL [Concomitant]
     Active Substance: TIMOLOL
     Indication: Angle closure glaucoma
     Dosage: UNK
     Route: 061
  4. TIMOLOL [Concomitant]
     Active Substance: TIMOLOL
     Indication: Glaucoma
  5. BRIMONIDINE [Concomitant]
     Active Substance: BRIMONIDINE TARTRATE
     Indication: Angle closure glaucoma
     Route: 061
  6. BRIMONIDINE [Concomitant]
     Active Substance: BRIMONIDINE TARTRATE
     Indication: Glaucoma
  7. ACETAZOLAMIDE [Concomitant]
     Active Substance: ACETAZOLAMIDE
     Indication: Angle closure glaucoma
     Dosage: 500 MILLIGRAM
     Route: 048
  8. ACETAZOLAMIDE [Concomitant]
     Active Substance: ACETAZOLAMIDE
     Indication: Glaucoma
  9. LATANOPROST [Concomitant]
     Active Substance: LATANOPROST
     Indication: Angle closure glaucoma
     Dosage: UNK
     Route: 061
  10. LATANOPROST [Concomitant]
     Active Substance: LATANOPROST
     Indication: Glaucoma
  11. BEVACIZUMAB [Concomitant]
     Active Substance: BEVACIZUMAB
     Indication: Angle closure glaucoma
     Dosage: 1.25 MG IN 0.05 ML
  12. BEVACIZUMAB [Concomitant]
     Active Substance: BEVACIZUMAB
     Indication: Glaucoma
  13. NETARSUDIL [Concomitant]
     Active Substance: NETARSUDIL
     Indication: Angle closure glaucoma
     Dosage: UNK
     Route: 061
  14. NETARSUDIL [Concomitant]
     Active Substance: NETARSUDIL
     Indication: Glaucoma

REACTIONS (1)
  - Product use in unapproved indication [Unknown]
